FAERS Safety Report 6773956-X (Version None)
Quarter: 2010Q2

REPORT INFORMATION
  Report Type: 
  Country: None (occurrence: None)
  Receive Date: 20100617
  Receipt Date: 20100616
  Transmission Date: 20101027
  Serious: Yes (Other)
  Sender: FDA-Public Use
  Company Number: BR-ABBOTT-10P-020-0649899-00

PATIENT
  Sex: Female
  Weight: 52 kg

DRUGS (3)
  1. HUMIRA [Suspect]
     Indication: RHEUMATOID ARTHRITIS
     Route: 058
     Dates: start: 20091217, end: 20091217
  2. LOVAZA [Concomitant]
     Indication: OSTEOPOROSIS
     Route: 048
     Dates: start: 20091201
  3. CALCIUM CARBONATE [Concomitant]
     Indication: BONE DISORDER
     Route: 048
     Dates: start: 20091201

REACTIONS (2)
  - BENIGN NEOPLASM [None]
  - PAIN [None]
